FAERS Safety Report 4650043-8 (Version None)
Quarter: 2005Q2

REPORT INFORMATION
  Report Type: 
  Country: None (occurrence: None)
  Receive Date: 20050502
  Receipt Date: 20050421
  Transmission Date: 20051028
  Serious: Yes (Other)
  Sender: FDA-Public Use
  Company Number: US-JNJFOC-20050407234

PATIENT
  Sex: Male
  Weight: 90.72 kg

DRUGS (2)
  1. EXTRA STRENGTH TYLENOL [Suspect]
     Route: 049
  2. EXTRA STRENGTH TYLENOL [Suspect]
     Indication: PAIN
     Dosage: EVERY 4 HOURS, NOT CONSISTENTLY
     Route: 049

REACTIONS (7)
  - ANOREXIA [None]
  - DRUG TOXICITY [None]
  - EATING DISORDER [None]
  - FOOD POISONING [None]
  - NAUSEA [None]
  - PALLOR [None]
  - STOMACH DISCOMFORT [None]
